FAERS Safety Report 7107306-6 (Version None)
Quarter: 2010Q4

REPORT INFORMATION
  Report Type: 
  Country: None (occurrence: None)
  Receive Date: 20101117
  Receipt Date: 20101102
  Transmission Date: 20110411
  Serious: Yes (Life-Threatening, Hospitalization, Other)
  Sender: FDA-Public Use
  Company Number: US-PAR PHARMACEUTICAL, INC-2010SCPR002285

PATIENT
  Age: 74 Year
  Sex: Female

DRUGS (9)
  1. RISPERIDONE [Suspect]
     Indication: AGGRESSION
     Dosage: 0.125 MG/D
     Route: 048
  2. RISPERIDONE [Suspect]
     Dosage: 1 MG/D
     Route: 065
  3. CITALOPRAM HYDROBROMIDE [Suspect]
     Indication: PRODUCT USED FOR UNKNOWN INDICATION
     Dosage: 40 MG/D
     Route: 065
  4. MEMANTINE [Suspect]
     Indication: PRODUCT USED FOR UNKNOWN INDICATION
     Dosage: 10 MG/D
     Route: 065
  5. DONEPEZIL HCL [Suspect]
     Indication: PRODUCT USED FOR UNKNOWN INDICATION
     Dosage: 10 MG/D
     Route: 065
  6. LEVOTHYROXINE SODIUM [Suspect]
     Indication: PRODUCT USED FOR UNKNOWN INDICATION
     Dosage: 150 UG/D
     Route: 065
  7. ATENOLOL [Suspect]
     Indication: PRODUCT USED FOR UNKNOWN INDICATION
     Dosage: 12.5 MG/D
     Route: 065
  8. SULFAMETHOXAZOLE AND TRIMETHOPRIM [Suspect]
     Indication: URINARY TRACT INFECTION
     Dosage: 2 DOUBLE-STRENGTH TABLETS DAILY
     Route: 065
  9. ASPIRIN [Suspect]
     Indication: PRODUCT USED FOR UNKNOWN INDICATION
     Dosage: 81 MG/D
     Route: 065

REACTIONS (3)
  - ACUTE PRERENAL FAILURE [None]
  - SEROTONIN SYNDROME [None]
  - URINARY TRACT INFECTION [None]
